FAERS Safety Report 14517643 (Version 3)
Quarter: 2021Q1

REPORT INFORMATION
  Report Type: Spontaneous
  Country: US (occurrence: US)
  Receive Date: 20180212
  Receipt Date: 20210330
  Transmission Date: 20210419
  Serious: No
  Sender: FDA-Public Use
  Company Number: US-PFIZER INC-2018056563

PATIENT
  Age: 46 Year
  Sex: Female

DRUGS (1)
  1. XELJANZ [Suspect]
     Active Substance: TOFACITINIB CITRATE
     Dosage: 5 MG, UNK

REACTIONS (8)
  - Intentional product misuse [Unknown]
  - Illness [Unknown]
  - Migraine [Unknown]
  - Ear infection [Unknown]
  - Nasopharyngitis [Unknown]
  - Influenza [Unknown]
  - Cough [Unknown]
  - Laryngitis [Unknown]
